FAERS Safety Report 4449889-0 (Version None)
Quarter: 2004Q3

REPORT INFORMATION
  Report Type: 
  Country: None (occurrence: None)
  Receive Date: 20040915
  Receipt Date: 20040903
  Transmission Date: 20050211
  Serious: Yes (Other)
  Sender: FDA-Public Use
  Company Number: US-MERCK-0409USA00401

PATIENT
  Age: 34 Year
  Sex: Male

DRUGS (1)
  1. ZETIA [Suspect]
     Route: 048
     Dates: start: 20040602, end: 20040827

REACTIONS (2)
  - NECK PAIN [None]
  - RHABDOMYOLYSIS [None]
